FAERS Safety Report 5116761-2 (Version None)
Quarter: 2006Q3

REPORT INFORMATION
  Report Type: 
  Country: None (occurrence: None)
  Receive Date: 20060925
  Receipt Date: 20060911
  Transmission Date: 20061208
  Serious: Yes (Death, Other)
  Sender: FDA-Public Use
  Company Number: 9932143

PATIENT
  Age: 14 Year
  Sex: Male

DRUGS (4)
  1. ZYRTEC [Suspect]
     Indication: EXPOSURE TO TOXIC AGENT
     Dosage: 10 MG (10 MG, 1 IN 1 D), ORAL
     Route: 048
     Dates: start: 19990705, end: 19990709
  2. PREDNISONE TAB [Suspect]
     Indication: HYPERSENSITIVITY
     Dosage: ORAL
     Route: 048
     Dates: start: 19990705
  3. DECADRON [Concomitant]
  4. DIPHENHYDRAMINE HCL [Suspect]
     Indication: HYPERSENSITIVITY

REACTIONS (4)
  - COMA [None]
  - CONVULSION [None]
  - DRUG HYPERSENSITIVITY [None]
  - PAIN [None]
